FAERS Safety Report 12717858 (Version 2)
Quarter: 2016Q4

REPORT INFORMATION
  Report Type: Report from Study
  Country: None (occurrence: AR)
  Receive Date: 20160906
  Receipt Date: 20161020
  Transmission Date: 20170207
  Serious: Yes (Death, Life-Threatening, Hospitalization, Other)
  Sender: FDA-Public Use
  Company Number: AR-ABBVIE-16K-007-1717275-00

PATIENT
  Sex: Female

DRUGS (1)
  1. HUMIRA [Suspect]
     Active Substance: ADALIMUMAB
     Indication: RHEUMATOID ARTHRITIS
     Route: 058
     Dates: start: 20151201

REACTIONS (3)
  - Hydrocephalus [Unknown]
  - Central nervous system infection [Unknown]
  - Intracranial aneurysm [Fatal]

NARRATIVE: CASE EVENT DATE: 2016
